FAERS Safety Report 25756015 (Version 1)
Quarter: 2025Q3

REPORT INFORMATION
  Report Type: Other
  Country: EU (occurrence: EU)
  Receive Date: 20250903
  Receipt Date: 20250903
  Transmission Date: 20251020
  Serious: Yes (Hospitalization, Other)
  Sender: Velzen Pharma
  Company Number: EU-Velzen pharma pvt ltd-2183727

PATIENT
  Age: 74 Year
  Sex: Male

DRUGS (8)
  1. NIFEDIPINE [Suspect]
     Active Substance: NIFEDIPINE
     Indication: Hypertension
  2. METOPROLOL TARTRATE [Suspect]
     Active Substance: METOPROLOL TARTRATE
  3. THIOCTIC ACID [Concomitant]
     Active Substance: THIOCTIC ACID
  4. PENTOXIFYLLINE [Concomitant]
     Active Substance: PENTOXIFYLLINE
  5. MOXONIDINE [Suspect]
     Active Substance: MOXONIDINE
  6. LOSARTAN POTASSIUM AND HYDROCHLOROTHIAZIDE [Suspect]
     Active Substance: HYDROCHLOROTHIAZIDE\LOSARTAN POTASSIUM
  7. GLIMEPIRIDE [Suspect]
     Active Substance: GLIMEPIRIDE
  8. METFORMIN [Suspect]
     Active Substance: METFORMIN HYDROCHLORIDE

REACTIONS (2)
  - Basal cell carcinoma [Unknown]
  - Product use in unapproved indication [Unknown]
